FAERS Safety Report 7385239-8 (Version None)
Quarter: 2011Q1

REPORT INFORMATION
  Report Type: 
  Country: None (occurrence: None)
  Receive Date: 20110330
  Receipt Date: 20110324
  Transmission Date: 20110831
  Serious: Yes (Hospitalization)
  Sender: FDA-Public Use
  Company Number: JP-MERCK-1103USA02112

PATIENT
  Age: 58 Year
  Sex: Male

DRUGS (3)
  1. KYTRIL [Concomitant]
     Route: 065
  2. EMEND [Suspect]
     Indication: PROPHYLAXIS OF NAUSEA AND VOMITING
     Route: 048
     Dates: start: 20110310, end: 20110310
  3. EMEND [Suspect]
     Indication: NAUSEA
     Route: 048
     Dates: start: 20110310, end: 20110310

REACTIONS (3)
  - PHOTOPHOBIA [None]
  - PAIN [None]
  - LOSS OF CONSCIOUSNESS [None]
